FAERS Safety Report 8942202 (Version 1)
Quarter: 2012Q4

REPORT INFORMATION
  Report Type: Spontaneous
  Country: US (occurrence: None)
  Receive Date: 20121129
  Receipt Date: 20121129
  Transmission Date: 20130627
  Serious: No
  Sender: FDA-Public Use
  Company Number: None

PATIENT
  Age: 36 Year
  Sex: Male
  Weight: 79.38 kg

DRUGS (2)
  1. DEXAMETHASONE [Suspect]
  2. LIDOCAINE [Suspect]

REACTIONS (10)
  - Hyperhidrosis [None]
  - Abdominal pain upper [None]
  - Hair growth abnormal [None]
  - Painful defaecation [None]
  - Lacrimation increased [None]
  - Hostility [None]
  - Asthenia [None]
  - Micturition urgency [None]
  - Ill-defined disorder [None]
  - Eye disorder [None]
